FAERS Safety Report 25448575 (Version 2)
Quarter: 2025Q3

REPORT INFORMATION
  Report Type: Report from Study
  Country: KR (occurrence: KR)
  Receive Date: 20250618
  Receipt Date: 20250701
  Transmission Date: 20251021
  Serious: Yes (Hospitalization)
  Sender: ABBVIE
  Company Number: KR-ABBVIE-6328200

PATIENT
  Age: 77 Year
  Sex: Female
  Weight: 62 kg

DRUGS (27)
  1. ATOGEPANT [Suspect]
     Active Substance: ATOGEPANT
     Indication: Migraine
     Route: 048
     Dates: start: 20250310
  2. TYLENOL [Concomitant]
     Active Substance: ACETAMINOPHEN
     Indication: Migraine
     Route: 048
     Dates: start: 20250515, end: 20250529
  3. TYLENOL [Concomitant]
     Active Substance: ACETAMINOPHEN
     Indication: Migraine
     Dosage: 8H EXTENDED RELEASE TABLET
     Route: 048
     Dates: start: 20250612, end: 20250612
  4. TYLENOL [Concomitant]
     Active Substance: ACETAMINOPHEN
     Indication: Migraine
     Dosage: 8H EXTENDED RELEASE TABLET
     Route: 048
     Dates: start: 20250612, end: 20250612
  5. ZOMIG [Concomitant]
     Active Substance: ZOLMITRIPTAN
     Indication: Migraine
     Dosage: STRENGTH 2.5 MG
     Route: 048
     Dates: start: 20250416
  6. LEQEMBI [Concomitant]
     Active Substance: LECANEMAB-IRMB
     Indication: Cognitive disorder
     Route: 042
     Dates: start: 20250612, end: 20250612
  7. LEQEMBI [Concomitant]
     Active Substance: LECANEMAB-IRMB
     Indication: Cognitive disorder
     Route: 042
     Dates: start: 20250529, end: 20250529
  8. LEQEMBI [Concomitant]
     Active Substance: LECANEMAB-IRMB
     Indication: Cognitive disorder
     Route: 042
     Dates: start: 20250515, end: 20250515
  9. ALLEGRA [Concomitant]
     Active Substance: FEXOFENADINE HYDROCHLORIDE
     Indication: Allergy prophylaxis
     Dosage: STRENGTH 120 MG
     Route: 048
     Dates: start: 20250612, end: 20250612
  10. CHOLINE ALFOSCERATE [Concomitant]
     Active Substance: CHOLINE ALFOSCERATE
     Indication: Cognitive disorder
     Route: 048
     Dates: start: 20250429, end: 20250527
  11. CHOLINE ALFOSCERATE [Concomitant]
     Active Substance: CHOLINE ALFOSCERATE
     Indication: Cognitive disorder
     Dosage: CKD GLIATILIN SOFT CAP
     Route: 048
     Dates: start: 20250529
  12. Peniramin [Concomitant]
     Indication: Allergy prophylaxis
     Route: 042
     Dates: start: 20250612, end: 20250612
  13. Peniramin [Concomitant]
     Indication: Allergy prophylaxis
     Route: 042
     Dates: start: 20250529, end: 20250529
  14. Peniramin [Concomitant]
     Indication: Allergy prophylaxis
     Route: 042
     Dates: start: 20250515, end: 20250515
  15. LIPITOR [Concomitant]
     Active Substance: ATORVASTATIN CALCIUM
     Indication: Hyperlipidaemia
     Dosage: STRENGTH 20MG
     Route: 048
     Dates: start: 20181213
  16. LEVOTHYROXINE SODIUM [Concomitant]
     Active Substance: LEVOTHYROXINE SODIUM
     Indication: Hypothyroidism
     Dosage: STRENGTH 50 UG
     Route: 048
     Dates: start: 20200512
  17. Candemore [Concomitant]
     Indication: Hypertension
     Dosage: STRENGTH 8 MG
     Route: 048
     Dates: start: 20180516
  18. Magmil s [Concomitant]
     Indication: Constipation
     Route: 048
     Dates: start: 20250310
  19. Naxen-f [Concomitant]
     Indication: Migraine
     Route: 048
     Dates: start: 20250416
  20. EPINEPHRINE [Concomitant]
     Active Substance: EPINEPHRINE
     Indication: Allergy prophylaxis
     Route: 030
     Dates: start: 20250612, end: 20250612
  21. EPINEPHRINE [Concomitant]
     Active Substance: EPINEPHRINE
     Indication: Allergy prophylaxis
     Route: 030
     Dates: start: 20250529, end: 20250529
  22. EPINEPHRINE [Concomitant]
     Active Substance: EPINEPHRINE
     Indication: Allergy prophylaxis
     Route: 030
     Dates: start: 20250515, end: 20250515
  23. FOSAMAX PLUS D [Concomitant]
     Active Substance: ALENDRONATE SODIUM\CHOLECALCIFEROL
     Indication: Osteoporosis
     Route: 048
     Dates: start: 20250219
  24. DEXAMETHASONE [Concomitant]
     Active Substance: DEXAMETHASONE
     Indication: Product used for unknown indication
     Route: 042
     Dates: start: 20250515, end: 20250515
  25. DEXAMETHASONE [Concomitant]
     Active Substance: DEXAMETHASONE
     Indication: Product used for unknown indication
     Route: 042
     Dates: start: 20250529, end: 20250529
  26. DEXAMETHASONE [Concomitant]
     Active Substance: DEXAMETHASONE
     Indication: Product used for unknown indication
     Route: 042
     Dates: start: 20250612, end: 20250612
  27. ALLEGRA [Concomitant]
     Active Substance: FEXOFENADINE HYDROCHLORIDE
     Indication: Allergy prophylaxis
     Route: 048
     Dates: start: 20250515, end: 20250529

REACTIONS (1)
  - Cognitive disorder [Not Recovered/Not Resolved]

NARRATIVE: CASE EVENT DATE: 20250515
